FAERS Safety Report 12442376 (Version 1)
Quarter: 2016Q2

REPORT INFORMATION
  Report Type: Spontaneous
  Country: US (occurrence: US)
  Receive Date: 20160607
  Receipt Date: 20160607
  Transmission Date: 20160815
  Serious: No
  Sender: FDA-Public Use
  Company Number: US-BAYER-2016-103949

PATIENT
  Age: 70 Year
  Sex: Female

DRUGS (14)
  1. CARBAMAZEPINE. [Concomitant]
     Active Substance: CARBAMAZEPINE
     Dosage: UNK
  2. CLARITIN [Suspect]
     Active Substance: LORATADINE
     Indication: HYPERSENSITIVITY
     Dosage: 1 DF, QD
     Dates: start: 20160525, end: 20160525
  3. CLARITIN [Suspect]
     Active Substance: LORATADINE
     Indication: SWELLING FACE
  4. NEXIUM [Concomitant]
     Active Substance: ESOMEPRAZOLE MAGNESIUM
     Dosage: UNK
  5. FOSAMAX [Concomitant]
     Active Substance: ALENDRONATE SODIUM
     Dosage: UNK
  6. MIRABEGRON [Concomitant]
     Active Substance: MIRABEGRON
     Dosage: UNK
  7. BENADRYL [Concomitant]
     Active Substance: DIPHENHYDRAMINE HYDROCHLORIDE
     Dosage: UNK, PRN
  8. ASPIRIN. [Concomitant]
     Active Substance: ASPIRIN
     Dosage: UNK
  9. CLARITIN [Suspect]
     Active Substance: LORATADINE
     Indication: RASH
  10. CLARITIN [Suspect]
     Active Substance: LORATADINE
     Indication: EYE PAIN
  11. CENTRUM SILVER [Concomitant]
     Active Substance: MINERALS\VITAMINS
     Dosage: UNK
  12. SENNA [Concomitant]
     Active Substance: SENNA LEAF\SENNOSIDES\SENNOSIDES A AND B
     Dosage: UNK
  13. CLARITIN [Suspect]
     Active Substance: LORATADINE
     Indication: EYE SWELLING
  14. STOOL SOFTENER [Concomitant]
     Active Substance: DOCUSATE CALCIUM
     Dosage: UNK

REACTIONS (10)
  - Vision blurred [Recovered/Resolved]
  - Skin fissures [None]
  - Discomfort [None]
  - Facial pain [None]
  - Product use issue [None]
  - Eye swelling [Recovered/Resolved]
  - Erythema [Recovered/Resolved]
  - Nervousness [Recovered/Resolved]
  - Drug ineffective [None]
  - Skin tightness [Recovered/Resolved]

NARRATIVE: CASE EVENT DATE: 20160525
